FAERS Safety Report 5078840-8 (Version None)
Quarter: 2006Q3

REPORT INFORMATION
  Report Type: 
  Country: None (occurrence: None)
  Receive Date: 20060814
  Receipt Date: 20060418
  Transmission Date: 20061208
  Serious: Yes (Death, Hospitalization, Other)
  Sender: FDA-Public Use
  Company Number: US-BAYER-200611659BCC

PATIENT
  Age: 84 Year
  Sex: Female
  Weight: 48 kg

DRUGS (10)
  1. ALEVE [Suspect]
     Indication: ARTHRALGIA
     Dosage: UNIT DOSE: 220 MG
     Route: 048
     Dates: start: 20051101, end: 20060101
  2. FUROSEMIDE [Concomitant]
     Dosage: TOTAL DAILY DOSE: 40 MG  UNIT DOSE: 40 MG
     Dates: end: 20060530
  3. HYDROXYZINE HCL [Concomitant]
     Dosage: UNIT DOSE: 25 MG
     Dates: end: 20060530
  4. TOPROL-XL [Concomitant]
     Dosage: TOTAL DAILY DOSE: 25 MG  UNIT DOSE: 25 MG
     Dates: end: 20060530
  5. LISINOPRIL [Concomitant]
     Dosage: TOTAL DAILY DOSE: 40 MG  UNIT DOSE: 40 MG
     Dates: end: 20060530
  6. LANOXICAPS [Concomitant]
     Dosage: TOTAL DAILY DOSE: 0.1 MG  UNIT DOSE: 0.1 MG
     Dates: end: 20060530
  7. NEXIUM [Concomitant]
  8. IRON [Concomitant]
     Route: 048
  9. NORVASC [Concomitant]
  10. ACETAMINOPHEN [Concomitant]

REACTIONS (5)
  - CEREBRAL HAEMORRHAGE [None]
  - CEREBROVASCULAR ACCIDENT [None]
  - GASTROINTESTINAL HAEMORRHAGE [None]
  - HAEMATEMESIS [None]
  - HAEMOGLOBIN DECREASED [None]
